FAERS Safety Report 21488206 (Version 2)
Quarter: 2022Q4

REPORT INFORMATION
  Report Type: Report from Study
  Country: US (occurrence: US)
  Receive Date: 20221020
  Receipt Date: 20221215
  Transmission Date: 20230113
  Serious: No
  Sender: FDA-Public Use
  Company Number: US-ABBVIE-4164534

PATIENT
  Sex: Female

DRUGS (1)
  1. IMBRUVICA [Suspect]
     Active Substance: IBRUTINIB
     Indication: Chronic lymphocytic leukaemia
     Route: 048
     Dates: start: 201912

REACTIONS (5)
  - Gastrointestinal bacterial infection [Unknown]
  - Frequent bowel movements [Unknown]
  - Large intestine polyp [Unknown]
  - Flatulence [Unknown]
  - Influenza [Unknown]
